FAERS Safety Report 20173751 (Version 1)
Quarter: 2021Q4

REPORT INFORMATION
  Report Type: Spontaneous
  Country: GR (occurrence: GR)
  Receive Date: 20211212
  Receipt Date: 20211212
  Transmission Date: 20220304
  Serious: Yes (Other)
  Sender: FDA-Public Use
  Company Number: GR-CELLTRION INC.-2021GR016987

PATIENT

DRUGS (2)
  1. INFLECTRA [Suspect]
     Active Substance: INFLIXIMAB-DYYB
     Indication: Psoriatic arthropathy
     Dosage: 4 VIALS/8 WEEKS
     Route: 042
     Dates: start: 2019
  2. INFLECTRA [Suspect]
     Active Substance: INFLIXIMAB-DYYB
     Dosage: UNK
     Dates: start: 20211005

REACTIONS (1)
  - Hip surgery [Recovered/Resolved]

NARRATIVE: CASE EVENT DATE: 20210601
